FAERS Safety Report 11507442 (Version 1)
Quarter: 2015Q3

REPORT INFORMATION
  Report Type: Spontaneous
  Country: US (occurrence: US)
  Receive Date: 20150903
  Receipt Date: 20150903
  Transmission Date: 20151125
  Serious: No
  Sender: FDA-Public Use
  Company Number: US-ELI_LILLY_AND_COMPANY-US200908002272

PATIENT
  Sex: Male

DRUGS (5)
  1. HUMALOG [Suspect]
     Active Substance: INSULIN LISPRO
     Route: 058
     Dates: start: 2004, end: 2006
  2. HUMALOG [Suspect]
     Active Substance: INSULIN LISPRO
     Dates: end: 2006
  3. LEVEMIR [Concomitant]
     Active Substance: INSULIN DETEMIR
  4. NOVOLOG [Concomitant]
     Active Substance: INSULIN ASPART
  5. EXFORGE /01634301/ [Concomitant]

REACTIONS (4)
  - Scleroderma [Recovered/Resolved]
  - Wrong drug administered [Not Recovered/Not Resolved]
  - Drug dose omission [Unknown]
  - Hyperhidrosis [Recovered/Resolved]

NARRATIVE: CASE EVENT DATE: 2004
